FAERS Safety Report 12254709 (Version 5)
Quarter: 2016Q2

REPORT INFORMATION
  Report Type: Report from Study
  Country: US (occurrence: US)
  Receive Date: 20160411
  Receipt Date: 20160627
  Transmission Date: 20160815
  Serious: Yes (Hospitalization, Other)
  Sender: FDA-Public Use
  Company Number: US-ACTELION-A-NJ2016-133223

PATIENT
  Age: 74 Year
  Sex: Female

DRUGS (2)
  1. RIOCIGUAT [Concomitant]
     Active Substance: RIOCIGUAT
  2. OPSUMIT [Suspect]
     Active Substance: MACITENTAN
     Indication: PULMONARY ARTERIAL HYPERTENSION
     Dosage: 10 MG, QD
     Route: 048
     Dates: start: 20140306

REACTIONS (9)
  - Cancer surgery [Unknown]
  - Lung neoplasm malignant [Unknown]
  - Sinusitis [Recovering/Resolving]
  - Constipation [Unknown]
  - Anxiety [Unknown]
  - Influenza [Recovering/Resolving]
  - Orthostatic hypotension [Recovering/Resolving]
  - Dyspepsia [Recovering/Resolving]
  - Hypotension [Unknown]
